FAERS Safety Report 24656635 (Version 1)
Quarter: 2024Q4

REPORT INFORMATION
  Report Type: Spontaneous
  Country: ES (occurrence: ES)
  Receive Date: 20241124
  Receipt Date: 20241124
  Transmission Date: 20250115
  Serious: Yes (Other)
  Sender: UCB
  Company Number: None

PATIENT
  Age: 29 Year
  Sex: Female

DRUGS (1)
  1. CERTOLIZUMAB PEGOL [Suspect]
     Active Substance: CERTOLIZUMAB PEGOL
     Indication: SAPHO syndrome
     Dosage: 200 MICROGRAM, EV 2 WEEKS(QOW)
     Route: 058
     Dates: start: 20241002, end: 20241031

REACTIONS (4)
  - Sense of oppression [Recovered/Resolved]
  - Nausea [Recovered/Resolved]
  - Formication [Recovered/Resolved]
  - Dizziness [Recovered/Resolved]

NARRATIVE: CASE EVENT DATE: 20241031
